FAERS Safety Report 15043571 (Version 6)
Quarter: 2020Q1

REPORT INFORMATION
  Report Type: Spontaneous
  Country: US (occurrence: US)
  Receive Date: 20180621
  Receipt Date: 20200313
  Transmission Date: 20200409
  Serious: Yes (Life-Threatening, Hospitalization)
  Sender: FDA-Public Use
  Company Number: US-VERTEX PHARMACEUTICALS-2018-003922

PATIENT
  Sex: Male

DRUGS (11)
  1. TIGECYCLINE. [Concomitant]
     Active Substance: TIGECYCLINE
     Dosage: 50 MG, BID
     Route: 042
  2. AMIKACIN. [Concomitant]
     Active Substance: AMIKACIN
     Dosage: 500 MG, QD
     Route: 055
  3. SYMDEKO [Suspect]
     Active Substance: IVACAFTOR\TEZACAFTOR
     Indication: CYSTIC FIBROSIS
     Dosage: 100MG TEZACAFTOR/150MG IVACAFTOR AM; 150MG IVACAFTOR PM
     Route: 048
     Dates: start: 20180512
  4. ETHAMBUTOL [Concomitant]
     Active Substance: ETHAMBUTOL HYDROCHLORIDE
     Dosage: 1200 MG, QD
  5. AZITHROMYCIN ANHYDROUS. [Concomitant]
     Active Substance: AZITHROMYCIN ANHYDROUS
     Dosage: 500 MG, QD
     Route: 048
  6. SYMDEKO [Interacting]
     Active Substance: IVACAFTOR\TEZACAFTOR
     Dosage: 100MG TEZACAFTOR/150MG IVACAFTOR AM ALTERNATING WITH 150MG IVACAFTOR PM
     Route: 048
  7. PULMOZYME [Concomitant]
     Active Substance: DORNASE ALFA
  8. MICAFUNGIN. [Concomitant]
     Active Substance: MICAFUNGIN SODIUM
     Dosage: 100 MG, QD
     Route: 042
  9. BEDAQUILINE [Interacting]
     Active Substance: BEDAQUILINE
     Indication: TUBERCULOSIS
     Dosage: UNK
     Route: 065
     Dates: start: 201901
  10. IMIPENEM CILASTATIN                /00820501/ [Concomitant]
     Active Substance: CILASTATIN SODIUM\IMIPENEM
     Dosage: 1 GRAM, BID
     Route: 042
  11. CLOFAZIMINE [Interacting]
     Active Substance: CLOFAZIMINE
     Indication: INFECTION
     Dosage: UNK
     Route: 065
     Dates: start: 201901

REACTIONS (7)
  - Vomiting [Unknown]
  - Tuberculosis [Unknown]
  - Depressed mood [Recovering/Resolving]
  - Rhinovirus infection [Recovering/Resolving]
  - Productive cough [Unknown]
  - Lower respiratory tract infection fungal [Recovering/Resolving]
  - Drug interaction [Unknown]

NARRATIVE: CASE EVENT DATE: 2018
